FAERS Safety Report 9718142 (Version 1)
Quarter: 2013Q4

REPORT INFORMATION
  Report Type: Spontaneous
  Country: US (occurrence: US)
  Receive Date: 20131125
  Receipt Date: 20131125
  Transmission Date: 20140711
  Serious: No
  Sender: FDA-Public Use
  Company Number: US-VIVUS-2013V1000050

PATIENT
  Sex: Female
  Weight: 93.07 kg

DRUGS (2)
  1. QSYMIA [Suspect]
     Indication: PRODUCT USED FOR UNKNOWN INDICATION
  2. YAZ [Concomitant]
     Indication: CONTRACEPTION
     Route: 048

REACTIONS (3)
  - Menorrhagia [Recovered/Resolved]
  - Mood swings [Recovered/Resolved]
  - Dysmenorrhoea [Recovered/Resolved]
